FAERS Safety Report 21344516 (Version 1)
Quarter: 2022Q3

REPORT INFORMATION
  Report Type: Spontaneous
  Country: US (occurrence: None)
  Receive Date: 20220916
  Receipt Date: 20220916
  Transmission Date: 20221027
  Serious: Yes (unspecified)
  Sender: FDA-Public Use
  Company Number: None

PATIENT
  Age: 57 Year
  Sex: Female

DRUGS (1)
  1. CANNABIDIOL\HERBALS\TETRAHYDROCANNABINOL MIXED [Suspect]
     Active Substance: CANNABIDIOL\HERBALS\TETRAHYDROCANNABINOL MIXED

REACTIONS (4)
  - Euphoric mood [None]
  - Tremor [None]
  - Dyspnoea [None]
  - Refusal of treatment by patient [None]

NARRATIVE: CASE EVENT DATE: 20220908
